FAERS Safety Report 6609116-2 (Version None)
Quarter: 2010Q1

REPORT INFORMATION
  Report Type: 
  Country: None (occurrence: None)
  Receive Date: 20100301
  Receipt Date: 20100224
  Transmission Date: 20100710
  Serious: Yes (Death, Hospitalization)
  Sender: FDA-Public Use
  Company Number: GB-MERCK-0903GBR00082

PATIENT
  Age: 49 Year
  Sex: Female
  Weight: 112 kg

DRUGS (5)
  1. RALTEGRAVIR POTASSIUM [Suspect]
     Indication: HIV INFECTION
     Route: 048
     Dates: start: 20090129, end: 20090301
  2. RITONAVIR [Concomitant]
     Indication: HIV INFECTION
     Route: 065
     Dates: start: 20090129, end: 20090216
  3. LOPINAVIR AND RITONAVIR [Concomitant]
     Indication: HIV INFECTION
     Route: 048
     Dates: start: 20090216, end: 20090301
  4. DARUNAVIR [Concomitant]
     Indication: HIV INFECTION
     Route: 065
     Dates: start: 20090129, end: 20090216
  5. ETRAVIRINE [Suspect]
     Indication: HIV INFECTION
     Route: 065
     Dates: start: 20090129, end: 20090216

REACTIONS (7)
  - ARTHRALGIA [None]
  - EYE DISORDER [None]
  - NEUROPATHY PERIPHERAL [None]
  - PARAESTHESIA [None]
  - STEVENS-JOHNSON SYNDROME [None]
  - TOXIC EPIDERMAL NECROLYSIS [None]
  - VISUAL IMPAIRMENT [None]
